APPROVED DRUG PRODUCT: LANSOPRAZOLE
Active Ingredient: LANSOPRAZOLE
Strength: 30MG
Dosage Form/Route: CAPSULE, DELAYED REL PELLETS;ORAL
Application: A091269 | Product #002 | TE Code: AB
Applicant: DR REDDYS LABORATORIES LTD
Approved: Oct 15, 2010 | RLD: No | RS: No | Type: RX